FAERS Safety Report 21243461 (Version 1)
Quarter: 2022Q3

REPORT INFORMATION
  Report Type: Spontaneous
  Country: US (occurrence: None)
  Receive Date: 20220822
  Receipt Date: 20220822
  Transmission Date: 20221026
  Serious: Yes (Disabling)
  Sender: FDA-Public Use
  Company Number: None

PATIENT
  Age: 72 Year
  Sex: Female
  Weight: 67.5 kg

DRUGS (11)
  1. OZEMPIC [Suspect]
     Active Substance: SEMAGLUTIDE
     Indication: Diabetes mellitus
     Route: 058
     Dates: start: 20220504, end: 20220511
  2. METFORMIN [Concomitant]
     Active Substance: METFORMIN HYDROCHLORIDE
  3. LISINOPRIL [Concomitant]
  4. FARXIGA [Concomitant]
     Active Substance: DAPAGLIFLOZIN PROPANEDIOL
  5. BASAGLAR [Concomitant]
     Active Substance: INSULIN GLARGINE
  6. ATORVASTATIN CALCIUM [Concomitant]
     Active Substance: ATORVASTATIN CALCIUM
  7. AMITRIPTYLINE [Concomitant]
     Active Substance: AMITRIPTYLINE
  8. LEVOTHYROXINE [Concomitant]
     Active Substance: LEVOTHYROXINE
  9. MULTIPLE VITAMIN FOR WOMEN OVER 50 [Concomitant]
  10. GLUCOSAMINE/CHONDROITIN [Concomitant]
  11. BERBERINE [Concomitant]
     Active Substance: BERBERINE

REACTIONS (6)
  - Arthralgia [None]
  - Furuncle [None]
  - Herpes zoster [None]
  - Autoimmune disorder [None]
  - Inflammation [None]
  - Therapy cessation [None]

NARRATIVE: CASE EVENT DATE: 20220513
